FAERS Safety Report 13122791 (Version 5)
Quarter: 2023Q1

REPORT INFORMATION
  Report Type: Spontaneous
  Country: US (occurrence: None)
  Receive Date: 20170117
  Receipt Date: 20230127
  Transmission Date: 20230417
  Serious: Yes (Other)
  Sender: FDA-Public Use
  Company Number: 2017SE02952

PATIENT
  Age: 781 Month
  Sex: Male
  Weight: 99.8 kg

DRUGS (77)
  1. NEXIUM [Suspect]
     Active Substance: ESOMEPRAZOLE MAGNESIUM
     Indication: Acid peptic disease
     Route: 048
     Dates: start: 2010, end: 2013
  2. NEXIUM [Suspect]
     Active Substance: ESOMEPRAZOLE MAGNESIUM
     Indication: Gastrooesophageal reflux disease
     Route: 048
     Dates: start: 2010, end: 2013
  3. NEXIUM [Suspect]
     Active Substance: ESOMEPRAZOLE MAGNESIUM
     Indication: Acid peptic disease
     Route: 048
     Dates: start: 2010, end: 2013
  4. NEXIUM [Suspect]
     Active Substance: ESOMEPRAZOLE MAGNESIUM
     Indication: Gastrooesophageal reflux disease
     Route: 048
     Dates: start: 2010, end: 2013
  5. NEXIUM [Suspect]
     Active Substance: ESOMEPRAZOLE MAGNESIUM
     Indication: Acid peptic disease
     Route: 048
     Dates: start: 20100607
  6. NEXIUM [Suspect]
     Active Substance: ESOMEPRAZOLE MAGNESIUM
     Indication: Gastrooesophageal reflux disease
     Route: 048
     Dates: start: 20100607
  7. PRILOSEC [Suspect]
     Active Substance: OMEPRAZOLE MAGNESIUM
     Indication: Acid peptic disease
     Route: 048
     Dates: start: 2006, end: 2015
  8. PRILOSEC [Suspect]
     Active Substance: OMEPRAZOLE MAGNESIUM
     Indication: Gastrooesophageal reflux disease
     Route: 048
     Dates: start: 2006, end: 2015
  9. PRILOSEC [Suspect]
     Active Substance: OMEPRAZOLE MAGNESIUM
     Indication: Acid peptic disease
     Dosage: TWICE DAILY
     Route: 048
     Dates: start: 20140911
  10. PRILOSEC [Suspect]
     Active Substance: OMEPRAZOLE MAGNESIUM
     Indication: Gastrooesophageal reflux disease
     Dosage: TWICE DAILY
     Route: 048
     Dates: start: 20140911
  11. PRILOSEC [Suspect]
     Active Substance: OMEPRAZOLE MAGNESIUM
     Indication: Acid peptic disease
     Route: 048
     Dates: start: 20140317
  12. PRILOSEC [Suspect]
     Active Substance: OMEPRAZOLE MAGNESIUM
     Indication: Gastrooesophageal reflux disease
     Route: 048
     Dates: start: 20140317
  13. PRILOSEC OTC [Suspect]
     Active Substance: OMEPRAZOLE MAGNESIUM
     Indication: Gastrooesophageal reflux disease
     Route: 048
     Dates: start: 2006, end: 2015
  14. PRILOSEC OTC [Suspect]
     Active Substance: OMEPRAZOLE MAGNESIUM
     Indication: Gastrooesophageal reflux disease
     Route: 048
     Dates: start: 2006, end: 2015
  15. PRILOSEC OTC [Suspect]
     Active Substance: OMEPRAZOLE MAGNESIUM
     Indication: Gastrooesophageal reflux disease
     Route: 048
     Dates: start: 20061002
  16. PRILOSEC OTC [Suspect]
     Active Substance: OMEPRAZOLE MAGNESIUM
     Indication: Gastrooesophageal reflux disease
     Route: 048
     Dates: start: 20061002
  17. PREVACID [Suspect]
     Active Substance: LANSOPRAZOLE
     Indication: Acid peptic disease
     Route: 065
     Dates: start: 2005, end: 2010
  18. PREVACID [Suspect]
     Active Substance: LANSOPRAZOLE
     Indication: Gastrooesophageal reflux disease
     Route: 065
     Dates: start: 2005, end: 2010
  19. PREVACID [Suspect]
     Active Substance: LANSOPRAZOLE
     Indication: Acid peptic disease
     Route: 065
     Dates: start: 20051217
  20. PREVACID [Suspect]
     Active Substance: LANSOPRAZOLE
     Indication: Gastrooesophageal reflux disease
     Route: 065
     Dates: start: 20051217
  21. PROTONIX [Suspect]
     Active Substance: PANTOPRAZOLE SODIUM
     Dosage: GENERIC
     Route: 065
     Dates: start: 2011
  22. PROTONIX [Suspect]
     Active Substance: PANTOPRAZOLE SODIUM
     Dosage: GENERIC
     Route: 065
     Dates: start: 20120401
  23. PROTONIX [Suspect]
     Active Substance: PANTOPRAZOLE SODIUM
     Dosage: GENERIC
     Route: 065
     Dates: start: 20160808
  24. PROTONIX [Suspect]
     Active Substance: PANTOPRAZOLE SODIUM
     Route: 065
     Dates: start: 20120828
  25. PROTONIX [Suspect]
     Active Substance: PANTOPRAZOLE SODIUM
     Route: 065
     Dates: start: 20161107
  26. PROTONIX [Suspect]
     Active Substance: PANTOPRAZOLE SODIUM
     Route: 065
     Dates: start: 20200208
  27. NYSTATIN [Concomitant]
     Active Substance: NYSTATIN
     Dosage: 100000 UNITS/ML
     Route: 065
     Dates: start: 20051215
  28. IBUPROFEN [Concomitant]
     Active Substance: IBUPROFEN
     Dosage: 600.0MG UNKNOWN
     Route: 065
     Dates: start: 20061008
  29. MUCINEX [Concomitant]
     Active Substance: GUAIFENESIN
     Dosage: 600.0MG UNKNOWN
     Route: 065
     Dates: start: 20061008
  30. LISINOPRIL [Concomitant]
     Active Substance: LISINOPRIL
     Indication: Blood pressure abnormal
     Dosage: 5.0MG UNKNOWN
     Route: 065
     Dates: start: 20101001
  31. LISINOPRIL [Concomitant]
     Active Substance: LISINOPRIL
     Indication: Blood pressure abnormal
     Dosage: UNKNOWN
     Route: 065
     Dates: start: 20120401
  32. GABAPENTIN [Concomitant]
     Active Substance: GABAPENTIN
     Dosage: 800.0MG UNKNOWN
     Route: 065
     Dates: start: 20140328
  33. MELOXICAM [Concomitant]
     Active Substance: MELOXICAM
     Dosage: 15.0MG UNKNOWN
     Route: 065
     Dates: start: 20140328
  34. PHENAZOPYRIDINE [Concomitant]
     Active Substance: PHENAZOPYRIDINE
     Dosage: 200.0MG UNKNOWN
     Route: 065
     Dates: start: 20150313
  35. ACETAMINOPHEN\HYDROCODONE BITARTRATE [Concomitant]
     Active Substance: ACETAMINOPHEN\HYDROCODONE BITARTRATE
     Dosage: 7.5/500
     Route: 065
     Dates: start: 20130516
  36. LEVAQUIN [Concomitant]
     Active Substance: LEVOFLOXACIN
     Route: 065
     Dates: start: 20140911
  37. SYNTHROID [Concomitant]
     Active Substance: LEVOTHYROXINE SODIUM
     Indication: Thyroid disorder
     Dosage: 25 MCG
     Route: 065
     Dates: start: 20170621
  38. MECLIZINE [Concomitant]
     Active Substance: MECLIZINE HYDROCHLORIDE
     Route: 065
  39. CIPROFLOXACIN [Concomitant]
     Active Substance: CIPROFLOXACIN
     Route: 065
  40. CIPROFLOXACIN [Concomitant]
     Active Substance: CIPROFLOXACIN
     Route: 065
     Dates: start: 20120523
  41. TAMSULOSIN [Concomitant]
     Active Substance: TAMSULOSIN
     Route: 065
  42. AVODART [Concomitant]
     Active Substance: DUTASTERIDE
     Route: 065
  43. AVODART [Concomitant]
     Active Substance: DUTASTERIDE
     Route: 065
     Dates: start: 20120514
  44. CETIRIZINE HYDROCHLORIDE [Concomitant]
     Active Substance: CETIRIZINE HYDROCHLORIDE
     Route: 065
  45. AMOXICILLIN [Concomitant]
     Active Substance: AMOXICILLIN
  46. CEPHALEXIN [Concomitant]
     Active Substance: CEPHALEXIN
     Route: 065
  47. SULFAMETHOXAZOLE [Concomitant]
     Active Substance: SULFAMETHOXAZOLE
     Route: 065
  48. CEFDINIR [Concomitant]
     Active Substance: CEFDINIR
     Route: 065
  49. CLARITHROMYCIN [Concomitant]
     Active Substance: CLARITHROMYCIN
     Route: 065
  50. DOXYCYCLINE [Concomitant]
     Active Substance: DOXYCYCLINE
     Route: 065
  51. FLUZONE [Concomitant]
     Active Substance: INFLUENZA A VIRUS A/CALIFORNIA/7/2009 X-179A (H1N1) ANTIGEN (FORMALDEHYDE INACTIVATED)\INFLUENZA A V
     Dates: start: 20130818
  52. VITAMIN B12 [Concomitant]
     Active Substance: CYANOCOBALAMIN
  53. FOLIC ACID [Concomitant]
     Active Substance: FOLIC ACID
  54. LIDOCAINE [Concomitant]
     Active Substance: LIDOCAINE
  55. HEPARIN [Concomitant]
     Active Substance: HEPARIN SODIUM
  56. POTASSIUM CHLORIDE [Concomitant]
     Active Substance: POTASSIUM CHLORIDE
  57. ASPIRIN [Concomitant]
     Active Substance: ASPIRIN
  58. NITROGLYCERIN [Concomitant]
     Active Substance: NITROGLYCERIN
  59. METOPROLOL [Concomitant]
     Active Substance: METOPROLOL
  60. ACETAMINOPHEN [Concomitant]
     Active Substance: ACETAMINOPHEN
  61. DIAZEPAM [Concomitant]
     Active Substance: DIAZEPAM
  62. DIPHENHYDRAMINE [Concomitant]
     Active Substance: DIPHENHYDRAMINE
  63. ZANTAC [Concomitant]
     Active Substance: RANITIDINE HYDROCHLORIDE
  64. CELEXA [Concomitant]
     Active Substance: CITALOPRAM HYDROBROMIDE
  65. SEROQUEL [Concomitant]
     Active Substance: QUETIAPINE FUMARATE
  66. TAMIFLU [Concomitant]
     Active Substance: OSELTAMIVIR PHOSPHATE
  67. APIS MELLIFICA/FUMARIC ACID/MYOSOTIS ARVENSIS/MAGNESIUM PHOSPHATE/OXAL [Concomitant]
     Route: 065
  68. APIS MELLIFICA/FUMARIC ACID/MYOSOTIS ARVENSIS/MAGNESIUM PHOSPHATE/OXAL [Concomitant]
     Route: 065
     Dates: start: 20170814
  69. FLUOCINONIDE [Concomitant]
     Active Substance: FLUOCINONIDE
     Dates: start: 20190905
  70. FEBUXOSTAT [Concomitant]
     Active Substance: FEBUXOSTAT
     Dates: start: 20200116
  71. CLOBETASOL [Concomitant]
     Active Substance: CLOBETASOL
  72. SYASTANE [Concomitant]
  73. MEDROL [Concomitant]
     Active Substance: METHYLPREDNISOLONE
  74. AUGMENTIN [Concomitant]
     Active Substance: AMOXICILLIN\CLAVULANATE POTASSIUM
  75. DOVONEX [Concomitant]
     Active Substance: CALCIPOTRIENE
  76. TROPININE [Concomitant]
  77. NASTURTIUM OFFICINALE/SODIUM SULFATE/MYOSOTIS ARVENSIS/GERANIUM ROBERT [Concomitant]

REACTIONS (3)
  - Chronic kidney disease [Not Recovered/Not Resolved]
  - Renal failure [Unknown]
  - Acute kidney injury [Unknown]

NARRATIVE: CASE EVENT DATE: 20140201
